FAERS Safety Report 26185711 (Version 1)
Quarter: 2025Q4

REPORT INFORMATION
  Report Type: Spontaneous
  Country: US (occurrence: None)
  Receive Date: 20251219
  Receipt Date: 20251219
  Transmission Date: 20260118
  Serious: Yes (Other)
  Sender: FDA-CTU
  Company Number: None

PATIENT
  Age: 35 Year
  Sex: Female
  Weight: 114 kg

DRUGS (1)
  1. IRON DEXTRAN [Suspect]
     Active Substance: IRON DEXTRAN
     Route: 041

REACTIONS (11)
  - Infusion related reaction [None]
  - Dyspnoea [None]
  - Arthralgia [None]
  - Paraesthesia [None]
  - Feeling hot [None]
  - Fear [None]
  - Hyperhidrosis [None]
  - Nausea [None]
  - Brain fog [None]
  - Blood pressure increased [None]
  - Heart rate increased [None]

NARRATIVE: CASE EVENT DATE: 20250813
